FAERS Safety Report 23016022 (Version 1)
Quarter: 2023Q4

REPORT INFORMATION
  Report Type: Spontaneous
  Country: US (occurrence: None)
  Receive Date: 20231001
  Receipt Date: 20231001
  Transmission Date: 20240110
  Serious: Yes (Other)
  Sender: FDA-Public Use
  Company Number: None

PATIENT
  Age: 51 Year
  Sex: Male
  Weight: 90 kg

DRUGS (1)
  1. CEFADROXIL [Suspect]
     Active Substance: CEFADROXIL
     Indication: Ingrown hair
     Dosage: 1 CAPSULE TWICE A DAY ORAL
     Route: 048
     Dates: start: 20230930

REACTIONS (5)
  - Abdominal pain upper [None]
  - Tremor [None]
  - Nervousness [None]
  - Dysstasia [None]
  - Dyskinesia [None]

NARRATIVE: CASE EVENT DATE: 20230930
